FAERS Safety Report 7053306-4 (Version None)
Quarter: 2010Q4

REPORT INFORMATION
  Report Type: 
  Country: None (occurrence: None)
  Receive Date: 20101014
  Receipt Date: 20101007
  Transmission Date: 20110411
  Serious: Yes (Other)
  Sender: FDA-Public Use
  Company Number: 020005

PATIENT

DRUGS (2)
  1. KEPPRA [Suspect]
     Indication: EPILEPSY
     Dosage: (500 MG BID ORAL)
     Route: 048
     Dates: start: 20100924
  2. ALEVIATIN /00017401/ (ALEVIATIN) [Suspect]
     Dosage: (200 MG)

REACTIONS (2)
  - FALL [None]
  - FEMUR FRACTURE [None]
